FAERS Safety Report 6717437-8 (Version None)
Quarter: 2010Q2

REPORT INFORMATION
  Report Type: 
  Country: None (occurrence: None)
  Receive Date: 20100510
  Receipt Date: 20100505
  Transmission Date: 20101027
  Serious: Yes (Death, Other)
  Sender: FDA-Public Use
  Company Number: US-ROCHE-693591

PATIENT
  Sex: Female

DRUGS (1)
  1. AVASTIN [Suspect]
     Indication: OVARIAN CANCER
     Route: 065
     Dates: start: 20051001, end: 20091008

REACTIONS (3)
  - SEPSIS [None]
  - SMALL INTESTINAL OBSTRUCTION [None]
  - WOUND DEHISCENCE [None]
